FAERS Safety Report 17245133 (Version 2)
Quarter: 2020Q1

REPORT INFORMATION
  Report Type: Spontaneous
  Country: PT (occurrence: PT)
  Receive Date: 20200108
  Receipt Date: 20200131
  Transmission Date: 20200409
  Serious: Yes (Hospitalization, Other)
  Sender: FDA-Public Use
  Company Number: PT-009507513-2001PRT000791

PATIENT
  Age: 42 Month
  Sex: Male
  Weight: 17.2 kg

DRUGS (5)
  1. VENTILAN (ALBUTEROL) [Suspect]
     Active Substance: ALBUTEROL
     Dosage: 2 TIMES DAILY ON DAY 3
     Dates: start: 20191226
  2. VENTILAN (ALBUTEROL) [Suspect]
     Active Substance: ALBUTEROL
     Dosage: 1 TIME DAILY ON DAY 4
     Dates: start: 20191227
  3. CELESTONE [Suspect]
     Active Substance: BETAMETHASONE
     Indication: BRONCHIOLITIS
     Dosage: 1.5 ML THREE TIMES A DAY
     Route: 048
     Dates: start: 20191224, end: 20191227
  4. VENTILAN (ALBUTEROL) [Suspect]
     Active Substance: ALBUTEROL
     Indication: BRONCHIOLITIS
     Dosage: 4 TIMES DAILY ON DAY 1
     Dates: start: 20191224, end: 20191227
  5. VENTILAN (ALBUTEROL) [Suspect]
     Active Substance: ALBUTEROL
     Dosage: 3 TIMES DAILY ON DAY 2
     Dates: start: 20191225

REACTIONS (3)
  - Type 1 diabetes mellitus [Recovered/Resolved]
  - Weight decreased [Recovered/Resolved]
  - Hypoglycaemia [Recovered/Resolved]

NARRATIVE: CASE EVENT DATE: 201912
